FAERS Safety Report 7142226-2 (Version None)
Quarter: 2010Q4

REPORT INFORMATION
  Report Type: 
  Country: None (occurrence: None)
  Receive Date: 20101207
  Receipt Date: 20101129
  Transmission Date: 20110411
  Serious: Yes (Hospitalization, Other)
  Sender: FDA-Public Use
  Company Number: BR-ABBOTT-10P-020-0688729-00

PATIENT
  Sex: Female

DRUGS (2)
  1. HUMIRA [Suspect]
     Indication: CROHN'S DISEASE
     Dates: end: 20100301
  2. DACTIL OB [Concomitant]
     Indication: THROMBOSIS

REACTIONS (7)
  - AMNIOTIC CAVITY DISORDER [None]
  - ANAEMIA [None]
  - CAESAREAN SECTION [None]
  - PREMATURE SEPARATION OF PLACENTA [None]
  - THROMBOSIS [None]
  - UMBILICAL CORD ABNORMALITY [None]
  - UTERINE CONTRACTIONS DURING PREGNANCY [None]
